FAERS Safety Report 18337093 (Version 1)
Quarter: 2020Q4

REPORT INFORMATION
  Report Type: Spontaneous
  Country: US (occurrence: US)
  Receive Date: 20201002
  Receipt Date: 20201002
  Transmission Date: 20210113
  Serious: Yes (Other)
  Sender: FDA-Public Use
  Company Number: US-MELINTA THERAPEUTICS, INC-US-MLNT-20-00267

PATIENT
  Age: 42 Year
  Sex: Female
  Weight: 81.65 kg

DRUGS (3)
  1. ORBACTIV [Suspect]
     Active Substance: ORITAVANCIN
     Indication: CELLULITIS STAPHYLOCOCCAL
     Dosage: NOT PROVIDED.
     Route: 041
     Dates: start: 20200526, end: 20200526
  2. SULFAMETHOXAYOLE/TRIMETHOPRIM [Concomitant]
     Indication: PRODUCT USED FOR UNKNOWN INDICATION
     Dosage: NOT PROVIDED.
  3. AZITHROMYCIN ANHYDROUS. [Concomitant]
     Active Substance: AZITHROMYCIN ANHYDROUS
     Indication: PRODUCT USED FOR UNKNOWN INDICATION
     Dosage: NOT PROVIDED.

REACTIONS (3)
  - Urticaria [Recovered/Resolved]
  - Rash [Recovered/Resolved]
  - Pruritus [Recovered/Resolved]

NARRATIVE: CASE EVENT DATE: 20200526
